FAERS Safety Report 25067901 (Version 1)
Quarter: 2025Q1

REPORT INFORMATION
  Report Type: Report from Study
  Country: US (occurrence: US)
  Receive Date: 20250312
  Receipt Date: 20250312
  Transmission Date: 20250409
  Serious: Yes (Other)
  Sender: ACADIA PHARMACEUTICALS
  Company Number: US-ACADIA PHARMACEUTICALS INC.-ACA-2025-PIM-002537

PATIENT
  Sex: Male

DRUGS (1)
  1. NUPLAZID [Suspect]
     Active Substance: PIMAVANSERIN TARTRATE
     Indication: Parkinson^s disease psychosis
     Dosage: 34 MILLIGRAM, QD
     Route: 048
     Dates: end: 20240826

REACTIONS (5)
  - Hallucination [Recovered/Resolved]
  - Heart rate irregular [Recovered/Resolved]
  - Contusion [Recovered/Resolved]
  - Cellulitis [Recovered/Resolved]
  - Drug ineffective [Recovered/Resolved]
